FAERS Safety Report 7070605-0 (Version None)
Quarter: 2010Q4

REPORT INFORMATION
  Report Type: 
  Country: None (occurrence: None)
  Receive Date: 20101029
  Receipt Date: 20101026
  Transmission Date: 20110411
  Serious: Yes (Other)
  Sender: FDA-Public Use
  Company Number: US-PFIZER INC-2010116695

PATIENT
  Sex: Female
  Weight: 44 kg

DRUGS (3)
  1. XALATAN [Suspect]
     Indication: NORMAL TENSION GLAUCOMA
     Dosage: UNK, DAILY
     Route: 047
  2. EVISTA [Concomitant]
     Indication: OSTEOPOROSIS
     Dosage: UNK
  3. IBANDRONATE SODIUM [Concomitant]
     Indication: OSTEOPOROSIS
     Dosage: UNK

REACTIONS (2)
  - DIABETES MELLITUS [None]
  - EYELID FUNCTION DISORDER [None]
